FAERS Safety Report 4308748-4 (Version None)
Quarter: 2004Q1

REPORT INFORMATION
  Report Type: 
  Country: None (occurrence: None)
  Receive Date: 20040227
  Receipt Date: 20040217
  Transmission Date: 20041129
  Serious: Yes (Death)
  Sender: FDA-Public Use
  Company Number: US-JNJFOC-20040203614

PATIENT
  Age: 56 Year
  Sex: Female
  Weight: 77.1115 kg

DRUGS (14)
  1. CISAPRIDE (CISAPRIDE) [Suspect]
     Indication: GASTROOESOPHAGEAL REFLUX DISEASE
     Dosage: 10 MG, 4 IN 1 DAY, ORAL
     Route: 048
     Dates: start: 20010524, end: 20040210
  2. METHOTREXATE [Concomitant]
  3. LEUCOVORIN CALCIUM [Concomitant]
  4. AMLODIPINE BESYLATE (AMLODIPINE BESILATE) [Concomitant]
  5. ACETAMINOPHEN [Concomitant]
  6. CALCIUM (CALCIUM) [Concomitant]
  7. MULTIVITAMIN [Concomitant]
  8. CALCITONIN SALMON (CALCITONIN, SALMON) [Concomitant]
  9. OXYGEN (OXYGEN) [Concomitant]
  10. PREDNSIONE (PREDNISONE) [Concomitant]
  11. ESCITALOPRAM OXALATE (ALL OTHER THERAPEUTIC PRODUCTS) [Concomitant]
  12. LANSOPRAZOLE [Concomitant]
  13. FUROSEMIDE [Concomitant]
  14. VITAMIN E [Concomitant]

REACTIONS (2)
  - PULMONARY HYPERTENSION [None]
  - RIGHT VENTRICULAR FAILURE [None]
